FAERS Safety Report 21921349 (Version 2)
Quarter: 2023Q2

REPORT INFORMATION
  Report Type: Report from Study
  Country: US (occurrence: US)
  Receive Date: 20230127
  Receipt Date: 20230424
  Transmission Date: 20230721
  Serious: Yes (Death, Hospitalization, Other)
  Sender: FDA-Public Use
  Company Number: US-BIOGEN-2022BI01099717

PATIENT
  Age: 54 Year
  Sex: Female

DRUGS (2)
  1. TYSABRI [Suspect]
     Active Substance: NATALIZUMAB
     Indication: Multiple sclerosis
     Route: 050
     Dates: start: 20180212, end: 20191101
  2. TYSABRI [Suspect]
     Active Substance: NATALIZUMAB
     Route: 050
     Dates: start: 20200204, end: 20211206

REACTIONS (3)
  - Progressive multifocal leukoencephalopathy [Fatal]
  - Multiple sclerosis relapse [Recovered/Resolved]
  - Immune reconstitution inflammatory syndrome [Unknown]

NARRATIVE: CASE EVENT DATE: 20211113
